FAERS Safety Report 9658208 (Version 1)
Quarter: 2013Q4

REPORT INFORMATION
  Report Type: Spontaneous
  Country: US (occurrence: US)
  Receive Date: 20131030
  Receipt Date: 20131030
  Transmission Date: 20140711
  Serious: Yes (Hospitalization, Other)
  Sender: FDA-Public Use
  Company Number: US-NAPPMUNDI-USA-2012-0081420

PATIENT
  Age: 23 Month
  Sex: 0

DRUGS (3)
  1. OXYCODONE HYDROCHLORIDE (SIMILAR TO NDA 22-272) [Suspect]
     Indication: ACCIDENTAL EXPOSURE TO PRODUCT BY CHILD
  2. XANAX [Suspect]
     Indication: ACCIDENTAL EXPOSURE TO PRODUCT BY CHILD
  3. LORTAB /00607101/ [Suspect]
     Indication: ACCIDENTAL EXPOSURE TO PRODUCT BY CHILD

REACTIONS (2)
  - Accidental overdose [Unknown]
  - Accidental exposure to product by child [Unknown]
